FAERS Safety Report 6144610-2 (Version None)
Quarter: 2009Q2

REPORT INFORMATION
  Report Type: 
  Country: None (occurrence: None)
  Receive Date: 20090406
  Receipt Date: 20090401
  Transmission Date: 20091009
  Serious: Yes (Life-Threatening, Hospitalization)
  Sender: FDA-Public Use
  Company Number: AU-ASTRAZENECA-2009AP02353

PATIENT
  Age: 22 Year
  Sex: Female
  Weight: 79 kg

DRUGS (7)
  1. PROPOFOL [Suspect]
     Route: 042
  2. XYLOCAINE W/ EPINEPHRINE [Suspect]
     Route: 065
  3. FENTANYL-25 [Suspect]
     Route: 042
  4. CYTOTEC [Suspect]
  5. HYPNOVEL [Suspect]
     Route: 042
  6. INDOCIN [Suspect]
     Route: 054
  7. MAXOLON [Suspect]
     Route: 042

REACTIONS (8)
  - ABDOMINAL PAIN [None]
  - ANXIETY [None]
  - BLOOD PRESSURE DECREASED [None]
  - DEPRESSED LEVEL OF CONSCIOUSNESS [None]
  - DIARRHOEA [None]
  - HYPERHIDROSIS [None]
  - PRURITUS [None]
  - TACHYCARDIA [None]
